FAERS Safety Report 18044008 (Version 1)
Quarter: 2020Q3

REPORT INFORMATION
  Report Type: Spontaneous
  Country: US (occurrence: US)
  Receive Date: 20200720
  Receipt Date: 20200720
  Transmission Date: 20201103
  Serious: No
  Sender: FDA-Public Use
  Company Number: US-SA-2020SA185774

PATIENT

DRUGS (1)
  1. DUPIXENT [Suspect]
     Active Substance: DUPILUMAB
     Indication: ASTHMA
     Dosage: 300 MG, QOW
     Route: 058
     Dates: start: 201911

REACTIONS (3)
  - Umbilical hernia repair [Recovered/Resolved]
  - Cholecystectomy [Recovered/Resolved]
  - Polypectomy [Recovered/Resolved]

NARRATIVE: CASE EVENT DATE: 20200511
